FAERS Safety Report 16533798 (Version 2)
Quarter: 2019Q3

REPORT INFORMATION
  Report Type: Spontaneous
  Country: CN (occurrence: CN)
  Receive Date: 20190705
  Receipt Date: 20190709
  Transmission Date: 20191004
  Serious: Yes (Life-Threatening)
  Sender: FDA-Public Use
  Company Number: CN-ASTRAZENECA-2019SE96197

PATIENT
  Age: 18 Year
  Sex: Male

DRUGS (6)
  1. NEXIUM [Suspect]
     Active Substance: ESOMEPRAZOLE MAGNESIUM
     Indication: OESOPHAGEAL ULCER
     Dosage: BUT THE NEXT DAY (AROUND JULY 3) THE PATIENT TOOK NEXIUM TABLET IN THE MORNING
     Route: 048
  2. NEXIUM [Suspect]
     Active Substance: ESOMEPRAZOLE MAGNESIUM
     Indication: GASTRIC ULCER
     Dosage: 1 TABLET ON AN EMPTY STOMACH AT 5:00-6:00 AM AND 1 TABLET BEFORE DINNER FOR 3 MONTHS
     Route: 048
     Dates: start: 201903
  3. NEXIUM [Suspect]
     Active Substance: ESOMEPRAZOLE MAGNESIUM
     Indication: GASTRIC ULCER
     Dosage: BUT THE NEXT DAY (AROUND JULY 3) THE PATIENT TOOK NEXIUM TABLET IN THE MORNING
     Route: 048
  4. OMEPRAZOLE. [Suspect]
     Active Substance: OMEPRAZOLE
     Dosage: UNKNOWN
     Route: 048
  5. TRADITIONAL CHINESE MEDICINE NOS [Concomitant]
     Active Substance: HERBALS
     Dates: start: 201903
  6. NEXIUM [Suspect]
     Active Substance: ESOMEPRAZOLE MAGNESIUM
     Indication: OESOPHAGEAL ULCER
     Dosage: 1 TABLET ON AN EMPTY STOMACH AT 5:00-6:00 AM AND 1 TABLET BEFORE DINNER FOR 3 MONTHS
     Route: 048
     Dates: start: 201903

REACTIONS (6)
  - Dyspnoea [Not Recovered/Not Resolved]
  - Hypoaesthesia [Unknown]
  - Angina pectoris [Unknown]
  - Heart rate increased [Not Recovered/Not Resolved]
  - Peripheral coldness [Unknown]
  - Presyncope [Not Recovered/Not Resolved]
